FAERS Safety Report 18251009 (Version 2)
Quarter: 2020Q3

REPORT INFORMATION
  Report Type: Report from Study
  Country: US (occurrence: US)
  Receive Date: 20200909
  Receipt Date: 20200930
  Transmission Date: 20201103
  Serious: Yes (Hospitalization)
  Sender: FDA-Public Use
  Company Number: US-JNJFOC-A-US2019-192384

PATIENT
  Age: 30 Year
  Sex: Female
  Weight: 68.1 kg

DRUGS (9)
  1. LETAIRIS [Concomitant]
     Active Substance: AMBRISENTAN
  2. XARELTO [Concomitant]
     Active Substance: RIVAROXABAN
  3. UPTRAVI [Suspect]
     Active Substance: SELEXIPAG
     Dosage: 800 MCG, BID
     Route: 048
  4. UPTRAVI [Suspect]
     Active Substance: SELEXIPAG
     Dosage: 200MCG QAM / 400MCG QPM
     Route: 048
  5. UPTRAVI [Suspect]
     Active Substance: SELEXIPAG
     Indication: PULMONARY ARTERIAL HYPERTENSION
     Dosage: 400 MCG, BID
     Route: 048
  6. UPTRAVI [Suspect]
     Active Substance: SELEXIPAG
     Dosage: 200 MCG, BID
     Route: 048
     Dates: start: 201906
  7. TADALAFIL. [Concomitant]
     Active Substance: TADALAFIL
  8. BUMEX [Concomitant]
     Active Substance: BUMETANIDE
  9. REMERON [Concomitant]
     Active Substance: MIRTAZAPINE

REACTIONS (5)
  - Headache [Unknown]
  - Dyspnoea [Unknown]
  - Pleurisy [Unknown]
  - Pericarditis [Unknown]
  - Chest pain [Unknown]
